FAERS Safety Report 4463239-5 (Version None)
Quarter: 2004Q3

REPORT INFORMATION
  Report Type: 
  Country: None (occurrence: None)
  Receive Date: 20040930
  Receipt Date: 20040928
  Transmission Date: 20050211
  Serious: Yes (Other)
  Sender: FDA-Public Use
  Company Number: US-GLAXOSMITHKLINE-A0527607A

PATIENT
  Sex: Female

DRUGS (15)
  1. LANOXIN [Suspect]
     Indication: DRUG USE FOR UNKNOWN INDICATION
     Dosage: 250MCG VARIABLE DOSE
     Route: 042
     Dates: start: 20040927
  2. ASPIRIN [Concomitant]
  3. COREG [Concomitant]
  4. LASIX [Concomitant]
  5. HUMULIN 70/30 [Concomitant]
  6. REGULAR ILETIN II [Concomitant]
  7. PREVACID [Concomitant]
  8. LISINOPRIL [Concomitant]
  9. K-DUR 10 [Concomitant]
  10. ALDACTONE [Concomitant]
  11. TYLENOL [Concomitant]
  12. ALBUTEROL [Concomitant]
  13. ROBITUSSIN-DM [Concomitant]
  14. ATIVAN [Concomitant]
  15. PHENERGAN HCL [Concomitant]

REACTIONS (5)
  - BURNING SENSATION [None]
  - CELLULITIS [None]
  - INJECTION SITE BURNING [None]
  - INJECTION SITE PAIN [None]
  - INJECTION SITE REACTION [None]
